FAERS Safety Report 7342572-3 (Version None)
Quarter: 2011Q1

REPORT INFORMATION
  Report Type: 
  Country: None (occurrence: None)
  Receive Date: 20110310
  Receipt Date: 20110211
  Transmission Date: 20110831
  Serious: Yes (Hospitalization, Other)
  Sender: FDA-Public Use
  Company Number: US-BAYER-2010-003136

PATIENT
  Sex: Female
  Weight: 98 kg

DRUGS (3)
  1. PROTONIX [Concomitant]
     Dosage: 40 MG, UNK
  2. YASMIN [Suspect]
     Indication: PRODUCT USED FOR UNKNOWN INDICATION
     Dosage: UNK
     Route: 048
     Dates: start: 20070523, end: 20090530
  3. YAZ [Suspect]
     Indication: PRODUCT USED FOR UNKNOWN INDICATION
     Dosage: UNK
     Route: 048
     Dates: start: 20070523, end: 20090530

REACTIONS (5)
  - DIARRHOEA [None]
  - EMOTIONAL DISTRESS [None]
  - CHOLELITHIASIS [None]
  - PAIN [None]
  - BILIARY DYSKINESIA [None]
